FAERS Safety Report 7261458-6 (Version None)
Quarter: 2011Q1

REPORT INFORMATION
  Report Type: 
  Country: None (occurrence: None)
  Receive Date: 20110130
  Receipt Date: 20101216
  Transmission Date: 20110831
  Serious: Yes (Hospitalization)
  Sender: FDA-Public Use
  Company Number: US-ABBOTT-10P-163-0672314-00

PATIENT
  Sex: Female
  Weight: 49.94 kg

DRUGS (9)
  1. MISOPROSTOL [Concomitant]
     Indication: PRODUCT USED FOR UNKNOWN INDICATION
  2. FENTANYL [Concomitant]
     Indication: CHEST PAIN
     Route: 062
  3. PREDNISONE [Concomitant]
     Indication: RHEUMATOID ARTHRITIS
  4. CALCIUM [Concomitant]
     Indication: PRODUCT USED FOR UNKNOWN INDICATION
  5. METHOTREXATE [Concomitant]
     Indication: RHEUMATOID ARTHRITIS
  6. DICLOFENAC [Concomitant]
     Indication: PAIN
  7. LEFLUNOMIDE [Concomitant]
     Indication: RHEUMATOID ARTHRITIS
  8. HUMIRA [Suspect]
     Indication: RHEUMATOID ARTHRITIS
     Dates: start: 20100517, end: 20100726
  9. LYRICA [Concomitant]
     Indication: FIBROMYALGIA

REACTIONS (4)
  - PAIN [None]
  - HIP FRACTURE [None]
  - CHEST PAIN [None]
  - FALL [None]
